FAERS Safety Report 9723224 (Version 1)
Quarter: 2013Q4

REPORT INFORMATION
  Report Type: Spontaneous
  Country: US (occurrence: US)
  Receive Date: 20131202
  Receipt Date: 20131202
  Transmission Date: 20140711
  Serious: Yes (Other)
  Sender: FDA-Public Use
  Company Number: US-GILEAD-2008-0016901

PATIENT
  Sex: Male
  Weight: 63.5 kg

DRUGS (1)
  1. TRUVADA [Suspect]

REACTIONS (1)
  - Nephropathy toxic [Unknown]
